FAERS Safety Report 9966553 (Version 2)
Quarter: 2014Q1

REPORT INFORMATION
  Report Type: Spontaneous
  Country: PR (occurrence: PR)
  Receive Date: 20140305
  Receipt Date: 20140305
  Transmission Date: 20141002
  Serious: No
  Sender: FDA-Public Use
  Company Number: PR-ABBVIE-13P-131-1082527-00

PATIENT
  Sex: Female
  Weight: 81.72 kg

DRUGS (11)
  1. HUMIRA [Suspect]
     Indication: PRODUCT USED FOR UNKNOWN INDICATION
     Dates: start: 201205
  2. METHOTREXATE [Concomitant]
     Indication: RHEUMATOID ARTHRITIS
     Route: 048
  3. FOLIC ACID [Concomitant]
     Indication: VITAMIN SUPPLEMENTATION
     Route: 048
  4. NEURONTIN [Concomitant]
     Indication: MYALGIA
  5. TRAMADOL [Concomitant]
     Indication: PAIN
  6. RELAFEN [Concomitant]
     Indication: PAIN
     Route: 048
  7. NORVASC [Concomitant]
     Indication: HYPERTENSION
  8. DAFLONEX [Concomitant]
     Indication: CARDIOVASCULAR DISORDER
     Route: 048
  9. AMBIEN [Concomitant]
     Indication: INSOMNIA
  10. ZOLOFT [Concomitant]
     Indication: DEPRESSION
  11. OMEPRAZOLE [Concomitant]
     Indication: GASTRITIS

REACTIONS (1)
  - Myalgia [Recovered/Resolved]
